FAERS Safety Report 16081444 (Version 1)
Quarter: 2019Q1

REPORT INFORMATION
  Report Type: Spontaneous
  Country: CA (occurrence: CA)
  Receive Date: 20190316
  Receipt Date: 20190316
  Transmission Date: 20190418
  Serious: Yes (Other)
  Sender: FDA-Public Use
  Company Number: CA-AUROBINDO-AUR-APL-2019-013842

PATIENT

DRUGS (2)
  1. LAMOTRIGINE TABLET [Suspect]
     Active Substance: LAMOTRIGINE
     Indication: SEIZURE PROPHYLAXIS
     Dosage: 100.0 MILLIGRAM, TWO TIMES A DAY
     Route: 065
  2. ALPRAZOLAM. [Suspect]
     Active Substance: ALPRAZOLAM
     Indication: SEIZURE PROPHYLAXIS
     Dosage: 0.25 MILLIGRAM, ONCE A DAY
     Route: 065

REACTIONS (2)
  - Product substitution issue [Recovered/Resolved]
  - Seizure [Recovered/Resolved]
